FAERS Safety Report 7638968-2 (Version None)
Quarter: 2011Q3

REPORT INFORMATION
  Report Type: 
  Country: None (occurrence: None)
  Receive Date: 20110727
  Receipt Date: 20110725
  Transmission Date: 20111222
  Serious: No
  Sender: FDA-Public Use
  Company Number: US-PFIZER INC-2011168659

PATIENT
  Sex: Female
  Weight: 81.633 kg

DRUGS (12)
  1. TOPIRAMATE [Concomitant]
     Indication: DEPRESSION
     Dosage: 50 MG IN MORNING; 100 MG AT NIGHT
  2. VITAMIN D [Concomitant]
     Dosage: 50000 UNITS
  3. CHANTIX [Suspect]
     Indication: SMOKING CESSATION THERAPY
     Dosage: 0.5 MG, 1X/DAY
     Route: 048
  4. ASPIRIN [Concomitant]
     Dosage: 81 MG, UNK
  5. CHANTIX [Suspect]
     Dosage: 0.5 MG, 2X/DAY
     Route: 048
     Dates: start: 20110701
  6. LEVEMIR [Concomitant]
     Indication: DIABETES MELLITUS
     Dosage: 80 UNITS
  7. LEXAPRO [Concomitant]
     Indication: DEPRESSION
     Dosage: 30 MG, DAILY
  8. GLUCOPHAGE [Concomitant]
     Indication: DIABETES MELLITUS
     Dosage: 1000 UNITS, 2X/DAY
  9. NORVASC [Concomitant]
     Indication: HYPERTENSION
     Dosage: 5 MG, DAILY
     Route: 048
  10. PREVACID [Concomitant]
     Indication: HIATUS HERNIA
     Dosage: UNK
  11. CHANTIX [Suspect]
     Dosage: 0.5 MG, 1X/DAY
     Route: 048
     Dates: start: 20110713, end: 20110701
  12. METOPROLOL [Concomitant]
     Indication: HYPERTENSION
     Dosage: 100 MG, 2X/DAY

REACTIONS (2)
  - INSOMNIA [None]
  - FATIGUE [None]
